FAERS Safety Report 11551805 (Version 1)
Quarter: 2015Q3

REPORT INFORMATION
  Report Type: Spontaneous
  Country: US (occurrence: US)
  Receive Date: 20150903
  Receipt Date: 20150903
  Transmission Date: 20151125
  Serious: No
  Sender: FDA-Public Use
  Company Number: US-ELI_LILLY_AND_COMPANY-US201005001591

PATIENT
  Age: 35 Year
  Sex: Female

DRUGS (3)
  1. HUMALOG MIX75/25 [Suspect]
     Active Substance: INSULIN LISPRO
     Dosage: 150 U, DAILY (1/D)
  2. HUMALOG MIX75/25 [Suspect]
     Active Substance: INSULIN LISPRO
     Dosage: UNK, AS NEEDED
  3. SYMLIN [Concomitant]
     Active Substance: PRAMLINTIDE ACETATE

REACTIONS (3)
  - Abdominal discomfort [Unknown]
  - Poor quality drug administered [Unknown]
  - Malaise [Unknown]

NARRATIVE: CASE EVENT DATE: 20100426
